FAERS Safety Report 15583525 (Version 1)
Quarter: 2018Q4

REPORT INFORMATION
  Report Type: Spontaneous
  Country: GB (occurrence: GB)
  Receive Date: 20181104
  Receipt Date: 20181104
  Transmission Date: 20190205
  Serious: Yes (Other)
  Sender: FDA-Public Use
  Company Number: GB-UCBSA-2018048805

PATIENT
  Age: 19 Year
  Sex: Male
  Weight: 56 kg

DRUGS (2)
  1. OMEPRAZOLE. [Concomitant]
     Active Substance: OMEPRAZOLE
     Indication: PRODUCT USED FOR UNKNOWN INDICATION
  2. KEPPRA [Suspect]
     Active Substance: LEVETIRACETAM
     Indication: MYOCLONIC EPILEPSY
     Dosage: 1500 MG, DAILY
     Route: 048
     Dates: start: 201304

REACTIONS (6)
  - Sunburn [Recovering/Resolving]
  - Skin warm [Unknown]
  - Erythema [Unknown]
  - Photosensitivity reaction [Recovering/Resolving]
  - Skin exfoliation [Unknown]
  - Pruritus [Unknown]

NARRATIVE: CASE EVENT DATE: 20180813
